FAERS Safety Report 20063225 (Version 1)
Quarter: 2021Q4

REPORT INFORMATION
  Report Type: Spontaneous
  Country: DE (occurrence: None)
  Receive Date: 20211112
  Receipt Date: 20211112
  Transmission Date: 20220304
  Serious: Yes (Other)
  Sender: FDA-Public Use
  Company Number: 2021A787405

PATIENT
  Age: 65 Year
  Sex: Male
  Weight: 99 kg

DRUGS (7)
  1. DAPAGLIFLOZIN [Suspect]
     Active Substance: DAPAGLIFLOZIN
     Indication: Type 2 diabetes mellitus
     Route: 048
  2. METFORMIN [Concomitant]
     Active Substance: METFORMIN HYDROCHLORIDE
     Indication: Diabetes mellitus
     Route: 048
  3. BEZAFIBRATE [Concomitant]
     Active Substance: BEZAFIBRATE
     Indication: Lipid metabolism disorder
     Route: 065
  4. ENALAPRIL [Concomitant]
     Active Substance: ENALAPRIL
     Indication: Hypertension
  5. MOXONODINE [Concomitant]
     Indication: Hypertension
  6. SEMAGLUTIDE [Concomitant]
     Active Substance: SEMAGLUTIDE
     Route: 058
  7. SEMAGLUTIDE [Concomitant]
     Active Substance: SEMAGLUTIDE
     Route: 058

REACTIONS (3)
  - Benign prostatic hyperplasia [Unknown]
  - Pollakiuria [Recovered/Resolved]
  - Weight decreased [Unknown]
